FAERS Safety Report 7507272-5 (Version None)
Quarter: 2011Q2

REPORT INFORMATION
  Report Type: 
  Country: None (occurrence: None)
  Receive Date: 20110526
  Receipt Date: 20110518
  Transmission Date: 20111010
  Serious: Yes (Hospitalization, Other)
  Sender: FDA-Public Use
  Company Number: PL-GENENTECH-319252

PATIENT
  Age: 58 Year
  Sex: Male

DRUGS (5)
  1. CYCLOPHOSPHAMIDE [Concomitant]
     Indication: B-CELL LYMPHOMA
     Dosage: UNK
  2. RITUXIMAB [Suspect]
     Indication: B-CELL LYMPHOMA
     Dosage: UNK
     Route: 065
     Dates: start: 20101116
  3. DAUNORUBICIN HCL [Concomitant]
     Indication: B-CELL LYMPHOMA
     Dosage: UNK
  4. PREDNISOLONE [Concomitant]
     Indication: B-CELL LYMPHOMA
     Dosage: UNK
  5. VINCRISTINE [Concomitant]
     Indication: B-CELL LYMPHOMA
     Dosage: UNK

REACTIONS (2)
  - LYMPHOMA [None]
  - DEEP VEIN THROMBOSIS [None]
